FAERS Safety Report 14936058 (Version 2)
Quarter: 2018Q2

REPORT INFORMATION
  Report Type: Spontaneous
  Country: CA (occurrence: CA)
  Receive Date: 20180524
  Receipt Date: 20180611
  Transmission Date: 20180711
  Serious: Yes (Other)
  Sender: FDA-Public Use
  Company Number: CA-BIOMARINAP-CA-2018-118383

PATIENT
  Age: 9 Year
  Sex: Female
  Weight: 21.8 kg

DRUGS (2)
  1. AERIUS [Concomitant]
     Active Substance: DESLORATADINE
     Indication: PREMEDICATION
     Dosage: 1.25 MG, SINGLE
     Route: 048
  2. NAGLAZYME [Suspect]
     Active Substance: GALSULFASE
     Indication: MUCOPOLYSACCHARIDOSIS VI
     Dosage: 1 MG/KG, QW
     Route: 042
     Dates: start: 2012

REACTIONS (1)
  - Spinal cord compression [Unknown]

NARRATIVE: CASE EVENT DATE: 20180430
